FAERS Safety Report 22645425 (Version 1)
Quarter: 2023Q2

REPORT INFORMATION
  Report Type: Spontaneous
  Country: US (occurrence: None)
  Receive Date: 20230626
  Receipt Date: 20230626
  Transmission Date: 20230722
  Serious: Yes (Other)
  Sender: FDA-Public Use
  Company Number: None

PATIENT
  Age: 75 Year
  Sex: Female
  Weight: 85.7 kg

DRUGS (1)
  1. AVATROMBOPAG [Suspect]
     Active Substance: AVATROMBOPAG
     Dosage: FREQUENCY : DAILY;?
     Route: 048
     Dates: start: 20230603, end: 20230612

REACTIONS (4)
  - Abdominal pain [None]
  - Decreased appetite [None]
  - Blood creatinine increased [None]
  - Liver function test increased [None]

NARRATIVE: CASE EVENT DATE: 20230612
